FAERS Safety Report 4280557-4 (Version None)
Quarter: 2004Q1

REPORT INFORMATION
  Report Type: 
  Country: None (occurrence: None)
  Receive Date: 20040127
  Receipt Date: 20031104
  Transmission Date: 20041129
  Serious: Yes (Hospitalization, Other)
  Sender: FDA-Public Use
  Company Number: 2003030398

PATIENT
  Age: 74 Year
  Sex: Male
  Weight: 66.8 kg

DRUGS (12)
  1. LIPITOR [Suspect]
     Indication: HYPERCHOLESTEROLAEMIA
     Dosage: 5 MG (DAILY), ORAL
     Route: 048
     Dates: start: 20010830, end: 20030602
  2. PL GRAN. (CAFFEINE, SALICYLAMIDE, PARACETAMOL, PROMETHAZINE METHYLENE [Suspect]
     Indication: NASOPHARYNGITIS
     Dosage: 3 GRAM (TID), ORAL
     Route: 048
     Dates: start: 20030520, end: 20030525
  3. CANDESARTAN CILEXETIL [Concomitant]
  4. BUFFERIN [Concomitant]
  5. NICERGOLINE [Concomitant]
  6. ALLOPURINOL [Concomitant]
  7. SENNA LEAF [Concomitant]
  8. NIFEDIPINE [Concomitant]
  9. DOXAZOSIN MESYLATE [Concomitant]
  10. NAFTOPIDIL [Concomitant]
  11. DISTIGMINE BROMIDE [Concomitant]
  12. ALLYESTRENOL [Concomitant]

REACTIONS (7)
  - ABDOMINAL PAIN UPPER [None]
  - ACUTE MYOCARDIAL INFARCTION [None]
  - ASTHENIA [None]
  - DRUG INTERACTION [None]
  - INCONTINENCE [None]
  - RENAL IMPAIRMENT [None]
  - RHABDOMYOLYSIS [None]
